FAERS Safety Report 9607379 (Version 1)
Quarter: 2013Q4

REPORT INFORMATION
  Report Type: Spontaneous
  Country: US (occurrence: None)
  Receive Date: 20131007
  Receipt Date: 20131007
  Transmission Date: 20140711
  Serious: Yes (Hospitalization, Disabling)
  Sender: FDA-Public Use
  Company Number: None

PATIENT
  Age: 48 Year
  Sex: Female
  Weight: 52.16 kg

DRUGS (2)
  1. SERTRALINE [Suspect]
     Indication: DEPRESSION
     Dosage: 1 PILL
     Route: 048
     Dates: start: 20130808, end: 20130822
  2. SERTRALINE [Suspect]
     Indication: ANXIETY
     Dosage: 1 PILL
     Route: 048
     Dates: start: 20130808, end: 20130822

REACTIONS (9)
  - Tremor [None]
  - Akathisia [None]
  - Dystonia [None]
  - Muscular weakness [None]
  - Hypoaesthesia [None]
  - Neuralgia [None]
  - Tardive dyskinesia [None]
  - Muscle tightness [None]
  - Tic [None]
